FAERS Safety Report 23681822 (Version 1)
Quarter: 2024Q1

REPORT INFORMATION
  Report Type: Spontaneous
  Country: JP (occurrence: JP)
  Receive Date: 20240328
  Receipt Date: 20240328
  Transmission Date: 20240410
  Serious: Yes (Life-Threatening, Hospitalization)
  Sender: FDA-Public Use
  Company Number: JP-MYE-2024M1027576AA

PATIENT
  Age: 35 Year
  Sex: Female

DRUGS (6)
  1. TACROLIMUS [Suspect]
     Active Substance: TACROLIMUS
     Indication: Antibody test positive
     Route: 048
  2. TACROLIMUS [Suspect]
     Active Substance: TACROLIMUS
     Indication: Dermatomyositis
  3. PREDNISOLONE [Suspect]
     Active Substance: PREDNISOLONE
     Indication: Antibody test positive
     Dosage: INITIAL DOSE
     Route: 048
  4. PREDNISOLONE [Suspect]
     Active Substance: PREDNISOLONE
     Indication: Dermatomyositis
     Dosage: 30 MILLIGRAM, QD
     Route: 048
  5. METHYLPREDNISOLONE [Suspect]
     Active Substance: METHYLPREDNISOLONE
     Indication: Antibody test positive
     Dosage: RECEIVED PULSE THERAPY
     Route: 065
  6. METHYLPREDNISOLONE [Suspect]
     Active Substance: METHYLPREDNISOLONE
     Indication: Dermatomyositis

REACTIONS (6)
  - Haemothorax [Recovered/Resolved]
  - Hypotension [Recovered/Resolved]
  - Respiratory distress [Recovered/Resolved]
  - Anaemia [Recovered/Resolved]
  - Drug ineffective [Unknown]
  - Off label use [Unknown]
